FAERS Safety Report 4324814-1 (Version None)
Quarter: 2004Q1

REPORT INFORMATION
  Report Type: 
  Country: None (occurrence: None)
  Receive Date: 20040326
  Receipt Date: 20040301
  Transmission Date: 20041129
  Serious: Yes (Hospitalization, Disabling)
  Sender: FDA-Public Use
  Company Number: DE-GLAXOSMITHKLINE-D0043275A

PATIENT
  Age: 38 Year
  Sex: Male
  Weight: 118 kg

DRUGS (2)
  1. COMBIVIR [Suspect]
     Indication: PROPHYLAXIS AGAINST HIV INFECTION
     Dosage: 1TAB TWICE PER DAY
     Route: 048
     Dates: start: 20020419, end: 20020510
  2. CRIXIVAN [Suspect]
     Indication: PROPHYLAXIS AGAINST HIV INFECTION
     Dosage: 800MG THREE TIMES PER DAY
     Route: 065
     Dates: start: 20020419, end: 20020510

REACTIONS (1)
  - LIPOMATOSIS [None]
